FAERS Safety Report 20722390 (Version 2)
Quarter: 2022Q3

REPORT INFORMATION
  Report Type: Report from Study
  Country: CN (occurrence: None)
  Receive Date: 20220418
  Receipt Date: 20220706
  Transmission Date: 20221027
  Serious: Yes (Hospitalization)
  Sender: FDA-Public Use
  Company Number: 2022A025814

PATIENT
  Age: 23756 Day
  Sex: Male

DRUGS (59)
  1. DURVALUMAB [Suspect]
     Active Substance: DURVALUMAB
     Indication: Non-small cell lung cancer
     Route: 042
     Dates: start: 20211223, end: 20211223
  2. DURVALUMAB [Suspect]
     Active Substance: DURVALUMAB
     Indication: Non-small cell lung cancer
     Route: 042
  3. DURVALUMAB [Suspect]
     Active Substance: DURVALUMAB
     Indication: Non-small cell lung cancer
     Route: 042
  4. GEMCITABINE [Suspect]
     Active Substance: GEMCITABINE
     Indication: Non-small cell lung cancer
     Route: 042
     Dates: start: 20211223, end: 20211223
  5. GEMCITABINE [Suspect]
     Active Substance: GEMCITABINE
     Indication: Non-small cell lung cancer
     Route: 042
  6. GEMCITABINE [Suspect]
     Active Substance: GEMCITABINE
     Indication: Non-small cell lung cancer
     Route: 042
  7. GEMCITABINE [Suspect]
     Active Substance: GEMCITABINE
     Indication: Non-small cell lung cancer
     Route: 042
  8. GEMCITABINE [Suspect]
     Active Substance: GEMCITABINE
     Indication: Non-small cell lung cancer
     Route: 042
  9. CISPLATIN [Suspect]
     Active Substance: CISPLATIN
     Indication: Non-small cell lung cancer
     Route: 042
     Dates: start: 20211223, end: 20211223
  10. CISPLATIN [Suspect]
     Active Substance: CISPLATIN
     Indication: Non-small cell lung cancer
     Route: 042
     Dates: start: 20211224, end: 20211224
  11. CISPLATIN [Suspect]
     Active Substance: CISPLATIN
     Indication: Non-small cell lung cancer
     Route: 042
  12. CISPLATIN [Suspect]
     Active Substance: CISPLATIN
     Indication: Non-small cell lung cancer
     Route: 042
  13. CISPLATIN [Suspect]
     Active Substance: CISPLATIN
     Indication: Non-small cell lung cancer
     Route: 042
  14. CISPLATIN [Suspect]
     Active Substance: CISPLATIN
     Indication: Non-small cell lung cancer
     Route: 042
  15. DIACETOACETIC ACID ETHYLENEDIAMINE INJECTION [Concomitant]
     Indication: Haemoptysis
     Dates: start: 20211216, end: 20211220
  16. LEVOFLOXACIN HYDROCHLORIDE [Concomitant]
     Active Substance: LEVOFLOXACIN HYDROCHLORIDE
     Indication: Productive cough
     Dates: start: 20211216, end: 20211220
  17. LEVOFLOXACIN HYDROCHLORIDE [Concomitant]
     Active Substance: LEVOFLOXACIN HYDROCHLORIDE
     Indication: Productive cough
     Dates: start: 20211214, end: 20211214
  18. TERBUTALINE SULFATE ATOMIZING SOLUTION [Concomitant]
     Indication: Productive cough
     Dates: start: 20211217, end: 20211222
  19. DEXAMETHASONE SODIUM PHOSPHATE [Concomitant]
     Active Substance: DEXAMETHASONE SODIUM PHOSPHATE
     Indication: Productive cough
     Dates: start: 20211217, end: 20211222
  20. DEXAMETHASONE SODIUM PHOSPHATE [Concomitant]
     Active Substance: DEXAMETHASONE SODIUM PHOSPHATE
     Indication: Vomiting
     Dates: start: 20211217, end: 20211222
  21. DEXAMETHASONE SODIUM PHOSPHATE [Concomitant]
     Active Substance: DEXAMETHASONE SODIUM PHOSPHATE
     Indication: Vomiting
     Dates: start: 20211217, end: 20211222
  22. DEXAMETHASONE SODIUM PHOSPHATE [Concomitant]
     Active Substance: DEXAMETHASONE SODIUM PHOSPHATE
     Indication: Prophylaxis of nausea and vomiting
     Dates: start: 20211217, end: 20211222
  23. DEXAMETHASONE SODIUM PHOSPHATE [Concomitant]
     Active Substance: DEXAMETHASONE SODIUM PHOSPHATE
     Indication: Productive cough
  24. DEXAMETHASONE SODIUM PHOSPHATE [Concomitant]
     Active Substance: DEXAMETHASONE SODIUM PHOSPHATE
     Indication: Vomiting
  25. DEXAMETHASONE SODIUM PHOSPHATE [Concomitant]
     Active Substance: DEXAMETHASONE SODIUM PHOSPHATE
     Indication: Vomiting
  26. DEXAMETHASONE SODIUM PHOSPHATE [Concomitant]
     Active Substance: DEXAMETHASONE SODIUM PHOSPHATE
     Indication: Prophylaxis of nausea and vomiting
  27. DEXAMETHASONE SODIUM PHOSPHATE [Concomitant]
     Active Substance: DEXAMETHASONE SODIUM PHOSPHATE
     Indication: Productive cough
  28. DEXAMETHASONE SODIUM PHOSPHATE [Concomitant]
     Active Substance: DEXAMETHASONE SODIUM PHOSPHATE
     Indication: Vomiting
  29. DEXAMETHASONE SODIUM PHOSPHATE [Concomitant]
     Active Substance: DEXAMETHASONE SODIUM PHOSPHATE
     Indication: Vomiting
  30. DEXAMETHASONE SODIUM PHOSPHATE [Concomitant]
     Active Substance: DEXAMETHASONE SODIUM PHOSPHATE
     Indication: Prophylaxis of nausea and vomiting
  31. DEXAMETHASONE SODIUM PHOSPHATE [Concomitant]
     Active Substance: DEXAMETHASONE SODIUM PHOSPHATE
     Indication: Productive cough
  32. DEXAMETHASONE SODIUM PHOSPHATE [Concomitant]
     Active Substance: DEXAMETHASONE SODIUM PHOSPHATE
     Indication: Vomiting
  33. DEXAMETHASONE SODIUM PHOSPHATE [Concomitant]
     Active Substance: DEXAMETHASONE SODIUM PHOSPHATE
     Indication: Vomiting
  34. DEXAMETHASONE SODIUM PHOSPHATE [Concomitant]
     Active Substance: DEXAMETHASONE SODIUM PHOSPHATE
     Indication: Prophylaxis of nausea and vomiting
  35. CODEINE PHOSPHATE [Concomitant]
     Active Substance: CODEINE PHOSPHATE
     Indication: Cough
     Dates: start: 20211221, end: 20211221
  36. LACTULOSE [Concomitant]
     Active Substance: LACTULOSE
     Indication: Constipation
     Dates: start: 20211225, end: 20211225
  37. MIXED SUGAR ELECTROLYTE INJECTION [Concomitant]
     Indication: Vomiting
     Dates: start: 20211223, end: 20211225
  38. MIXED SUGAR ELECTROLYTE INJECTION [Concomitant]
     Indication: Vomiting
     Dates: start: 20211223, end: 20211225
  39. MIXED SUGAR ELECTROLYTE INJECTION [Concomitant]
     Indication: Polyuria
     Dates: start: 20211223, end: 20211225
  40. MIXED SUGAR ELECTROLYTE INJECTION [Concomitant]
     Indication: Vomiting
  41. MIXED SUGAR ELECTROLYTE INJECTION [Concomitant]
     Indication: Vomiting
  42. MIXED SUGAR ELECTROLYTE INJECTION [Concomitant]
     Indication: Polyuria
  43. MIXED SUGAR ELECTROLYTE INJECTION [Concomitant]
     Indication: Vomiting
  44. MIXED SUGAR ELECTROLYTE INJECTION [Concomitant]
     Indication: Vomiting
  45. MIXED SUGAR ELECTROLYTE INJECTION [Concomitant]
     Indication: Polyuria
  46. TROPISETRON HYDROCHLORIDE INJECTION [Concomitant]
     Indication: Vomiting
     Dates: start: 20211223
  47. TROPISETRON HYDROCHLORIDE INJECTION [Concomitant]
     Indication: Prophylaxis of nausea and vomiting
     Dates: start: 20211223
  48. TROPISETRON HYDROCHLORIDE INJECTION [Concomitant]
     Indication: Vomiting
  49. TROPISETRON HYDROCHLORIDE INJECTION [Concomitant]
     Indication: Prophylaxis of nausea and vomiting
  50. BETASTINE HYDROCHLORIDE INJECTION [Concomitant]
     Indication: Vomiting
     Dates: start: 20211224
  51. HYDROPREDNISONE INJECTION [Concomitant]
     Indication: Vomiting
     Dates: start: 20211224
  52. GLUTATHIONE FOR INJECTION [Concomitant]
     Indication: Liver transplant rejection
     Dates: start: 20211223
  53. GLUTATHIONE FOR INJECTION [Concomitant]
     Indication: Liver transplant rejection
  54. FUROSEMIDE [Concomitant]
     Active Substance: FUROSEMIDE
     Indication: Polyuria
     Dates: start: 20211223, end: 20211223
  55. OMEPRAZOLE SODIUM [Concomitant]
     Active Substance: OMEPRAZOLE SODIUM
     Indication: Gastritis
     Dates: start: 20211224
  56. OMEPRAZOLE SODIUM FOR INJECTION [Concomitant]
     Indication: Prophylaxis of nausea and vomiting
  57. CODEINE PHOSPHATE [Concomitant]
     Active Substance: CODEINE PHOSPHATE
     Indication: Cough
     Dates: start: 20211214, end: 20211214
  58. CODEINE PHOSPHATE [Concomitant]
     Active Substance: CODEINE PHOSPHATE
     Indication: Cough
  59. PHENYLETHYLAMINE INJECTION [Concomitant]
     Indication: Haemoptysis
     Dates: start: 20211214, end: 20211214

REACTIONS (1)
  - Hepatic failure [Recovered/Resolved]

NARRATIVE: CASE EVENT DATE: 20220112
